FAERS Safety Report 9105629 (Version 1)
Quarter: 2013Q1

REPORT INFORMATION
  Report Type: Spontaneous
  Country: MX (occurrence: MX)
  Receive Date: 20130220
  Receipt Date: 20130220
  Transmission Date: 20140127
  Serious: Yes (Hospitalization, Other)
  Sender: FDA-Public Use
  Company Number: PHHY2013MX016437

PATIENT
  Age: 38 Year
  Sex: Female

DRUGS (4)
  1. GILENYA [Suspect]
     Indication: MULTIPLE SCLEROSIS
     Dosage: 1 DF, QD
     Route: 048
     Dates: start: 201212
  2. CYMBALTA [Concomitant]
     Indication: DEPRESSION
     Dosage: 1 DF, QD
     Dates: start: 201202
  3. TOPAMAX [Concomitant]
     Indication: MIGRAINE
     Dosage: 1 DF, QD
     Dates: start: 201207
  4. LOSARTAN [Concomitant]
     Indication: BLOOD PRESSURE INCREASED
     Dosage: 1 DF, QD
     Dates: start: 201211

REACTIONS (4)
  - Nausea [Recovered/Resolved]
  - Dizziness [Recovered/Resolved]
  - Hypertension [Recovered/Resolved]
  - Joint injury [Recovered/Resolved]
